FAERS Safety Report 7042232-2 (Version None)
Quarter: 2010Q4

REPORT INFORMATION
  Report Type: 
  Country: None (occurrence: None)
  Receive Date: 20101013
  Receipt Date: 20101011
  Transmission Date: 20110411
  Serious: No
  Sender: FDA-Public Use
  Company Number: US-TEVA-251260USA

PATIENT
  Sex: Female
  Weight: 77.18 kg

DRUGS (1)
  1. ALBUTEROL SULFATE AUTOHALER [Suspect]
     Route: 055
     Dates: start: 20101001

REACTIONS (2)
  - DYSPHONIA [None]
  - FEELING JITTERY [None]
